FAERS Safety Report 6742507-8 (Version None)
Quarter: 2010Q2

REPORT INFORMATION
  Report Type: 
  Country: None (occurrence: None)
  Receive Date: 20100526
  Receipt Date: 20100518
  Transmission Date: 20101027
  Serious: Yes (Hospitalization)
  Sender: FDA-Public Use
  Company Number: US-ASTRAZENECA-2010SE06529

PATIENT
  Sex: Female

DRUGS (8)
  1. CRESTOR [Suspect]
     Route: 048
     Dates: start: 20070201
  2. CRESTOR [Suspect]
     Route: 048
     Dates: start: 20100201
  3. PLAVIX [Concomitant]
     Indication: BLOOD CHOLESTEROL
     Route: 048
     Dates: start: 20070201
  4. LISINOPRIL [Concomitant]
     Indication: HYPERTENSION
     Route: 048
     Dates: start: 20070201
  5. FISH OIL [Concomitant]
  6. VITAMINS [Concomitant]
  7. FLEXERIL [Concomitant]
  8. TYLENOL (CAPLET) [Concomitant]

REACTIONS (4)
  - ACUTE MYOCARDIAL INFARCTION [None]
  - DYSPNOEA [None]
  - HEADACHE [None]
  - VISION BLURRED [None]
